FAERS Safety Report 7917885-4 (Version None)
Quarter: 2011Q4

REPORT INFORMATION
  Report Type: 
  Country: None (occurrence: None)
  Receive Date: 20111114
  Receipt Date: 20111107
  Transmission Date: 20120403
  Serious: Yes (Death, Hospitalization)
  Sender: FDA-Public Use
  Company Number: 2011SP048283

PATIENT
  Age: 64 Year
  Sex: Male

DRUGS (8)
  1. TEMODAL [Suspect]
  2. TEMODAL [Suspect]
  3. TEMODAL [Suspect]
  4. BACTRIM [Concomitant]
  5. LANSOPRAZOLE [Concomitant]
  6. TEMODAL [Suspect]
     Indication: GLIOBLASTOMA MULTIFORME
     Dosage: 150 MG; QD; PO, 120 MG; QD; PO
     Route: 048
     Dates: start: 20110719, end: 20110723
  7. TEMODAL [Suspect]
     Indication: GLIOBLASTOMA MULTIFORME
     Dosage: 150 MG; QD; PO, 120 MG; QD; PO
     Route: 048
     Dates: start: 20110920, end: 20110920
  8. SOLDESAM /00016002/ [Concomitant]

REACTIONS (3)
  - GENERAL PHYSICAL HEALTH DETERIORATION [None]
  - BONE MARROW FAILURE [None]
  - TOXICITY TO VARIOUS AGENTS [None]
